FAERS Safety Report 17804841 (Version 1)
Quarter: 2020Q2

REPORT INFORMATION
  Report Type: Report from Study
  Country: None (occurrence: BR)
  Receive Date: 20200520
  Receipt Date: 20200520
  Transmission Date: 20200714
  Serious: Yes (Other)
  Sender: FDA-Public Use
  Company Number: BR-ABBVIE-19K-020-2931079-00

PATIENT
  Sex: Male
  Weight: 95 kg

DRUGS (2)
  1. HUMIRA [Suspect]
     Active Substance: ADALIMUMAB
     Indication: ANKYLOSING SPONDYLITIS
     Route: 058
     Dates: start: 20160405
  2. INFRALAX [Concomitant]
     Active Substance: ACETAMINOPHEN\CAFFEINE\CARISOPRODOL\DICLOFENAC SODIUM
     Indication: MUSCLE RELAXANT THERAPY

REACTIONS (8)
  - Ankle fracture [Unknown]
  - Anxiety [Not Recovered/Not Resolved]
  - Inflammation [Unknown]
  - Pain [Unknown]
  - Transplant rejection [Unknown]
  - Arthritis [Unknown]
  - Bacterial infection [Unknown]
  - Foot fracture [Unknown]

NARRATIVE: CASE EVENT DATE: 2017
